FAERS Safety Report 21719690 (Version 1)
Quarter: 2022Q4

REPORT INFORMATION
  Report Type: Report from Study
  Country: US (occurrence: US)
  Receive Date: 20221213
  Receipt Date: 20221213
  Transmission Date: 20230112
  Serious: No
  Sender: FDA-Public Use
  Company Number: US-ABBVIE-22K-163-4383232-00

PATIENT
  Age: 57 Year
  Sex: Female

DRUGS (3)
  1. RINVOQ [Suspect]
     Active Substance: UPADACITINIB
     Indication: Polymyositis
     Dosage: LAST ADMIN DATE MAY 2022
     Route: 048
     Dates: start: 20220402
  2. RINVOQ [Suspect]
     Active Substance: UPADACITINIB
     Indication: Polymyositis
     Dosage: 15 MILLIGRAM
     Route: 048
     Dates: start: 20220928
  3. ZOFRAN [Concomitant]
     Active Substance: ONDANSETRON HYDROCHLORIDE
     Indication: Product used for unknown indication

REACTIONS (5)
  - Off label use [Unknown]
  - Polymyositis [Unknown]
  - Weight decreased [Unknown]
  - Coeliac artery compression syndrome [Unknown]
  - Nausea [Unknown]

NARRATIVE: CASE EVENT DATE: 20220401
